FAERS Safety Report 17116016 (Version 1)
Quarter: 2019Q4

REPORT INFORMATION
  Report Type: Spontaneous
  Country: US (occurrence: US)
  Receive Date: 20191113
  Receipt Date: 20191113
  Transmission Date: 20200122
  Serious: No
  Sender: FDA-Public Use
  Company Number: None

PATIENT
  Age: 59 Year
  Sex: Female

DRUGS (1)
  1. BOTOX [Suspect]
     Active Substance: ONABOTULINUMTOXINA
     Dosage: 185 UNITS IM EVERY 3 M OTHER
     Route: 030
     Dates: start: 201811

REACTIONS (1)
  - Overdose [None]

NARRATIVE: CASE EVENT DATE: 20191113
